FAERS Safety Report 7723994-5 (Version None)
Quarter: 2011Q3

REPORT INFORMATION
  Report Type: 
  Country: None (occurrence: None)
  Receive Date: 20110901
  Receipt Date: 20110826
  Transmission Date: 20111222
  Serious: Yes (Hospitalization)
  Sender: FDA-Public Use
  Company Number: ES-B.I. PHARMACEUTICALS,INC./RIDGEFIELD-2011-ES-00197ES

PATIENT
  Age: 70 Year
  Sex: Male

DRUGS (3)
  1. LACEROL [Concomitant]
     Indication: HYPERTENSION
  2. PRADAXA [Suspect]
     Indication: ATRIAL FIBRILLATION
     Dosage: 150 MG
     Route: 048
     Dates: start: 20110704, end: 20110720
  3. ANTIPLATELET DRUGS [Concomitant]

REACTIONS (2)
  - HEPATITIS ACUTE [None]
  - TOXICITY TO VARIOUS AGENTS [None]
